FAERS Safety Report 15653433 (Version 1)
Quarter: 2018Q4

REPORT INFORMATION
  Report Type: Spontaneous
  Country: SK (occurrence: SK)
  Receive Date: 20181124
  Receipt Date: 20181124
  Transmission Date: 20190205
  Serious: Yes (Other)
  Sender: FDA-Public Use
  Company Number: SK-ACCORD-092931

PATIENT
  Age: 74 Year
  Sex: Male
  Weight: 78 kg

DRUGS (12)
  1. VINCRISTINE [Suspect]
     Active Substance: VINCRISTINE
     Indication: NON-HODGKIN^S LYMPHOMA
     Dosage: JUL-2015 TO SEP-2015,2 MONTHS
     Route: 065
     Dates: start: 2012
  2. PANGROL [Concomitant]
     Active Substance: PANCRELIPASE
     Indication: PANCREATITIS CHRONIC
     Route: 048
  3. CETIRIZINE [Concomitant]
     Active Substance: CETIRIZINE HYDROCHLORIDE
     Indication: ASTHMA
     Route: 048
  4. ETOPOSIDE. [Suspect]
     Active Substance: ETOPOSIDE
     Indication: MANTLE CELL LYMPHOMA
     Route: 042
     Dates: start: 20151013, end: 20151015
  5. RITUXIMAB. [Suspect]
     Active Substance: RITUXIMAB
     Indication: MANTLE CELL LYMPHOMA
     Dosage: 2012
     Route: 042
     Dates: start: 20151013, end: 20151013
  6. AMINO ACIDS NOS [Concomitant]
     Active Substance: AMINO ACIDS
     Indication: NEPHROPATHY
     Route: 048
  7. ALFUZOSIN [Concomitant]
     Active Substance: ALFUZOSIN
     Indication: BENIGN PROSTATIC HYPERPLASIA
     Route: 048
  8. PREDNISONE. [Suspect]
     Active Substance: PREDNISONE
     Indication: NON-HODGKIN^S LYMPHOMA
     Route: 048
     Dates: start: 2012
  9. FRAXIPARINE [Concomitant]
     Active Substance: NADROPARIN CALCIUM
     Indication: DEEP VEIN THROMBOSIS
     Route: 058
  10. DOXORUBICIN [Suspect]
     Active Substance: DOXORUBICIN
     Indication: NON-HODGKIN^S LYMPHOMA
     Route: 065
     Dates: start: 2012
  11. ENDOXAN [Suspect]
     Active Substance: CYCLOPHOSPHAMIDE
     Indication: MANTLE CELL LYMPHOMA
     Route: 042
     Dates: start: 20151013, end: 20151013
  12. SERETIDE [Concomitant]
     Active Substance: FLUTICASONE PROPIONATE\SALMETEROL XINAFOATE
     Indication: ASTHMA
     Dosage: 50/250
     Route: 048

REACTIONS (5)
  - Sinusitis [Recovered/Resolved]
  - Palpitations [Recovered/Resolved]
  - Stomatitis [Recovered/Resolved]
  - Angina pectoris [Recovered/Resolved]
  - Constipation [Recovered/Resolved]

NARRATIVE: CASE EVENT DATE: 20151020
